FAERS Safety Report 9146754 (Version 1)
Quarter: 2013Q1

REPORT INFORMATION
  Report Type: Spontaneous
  Country: US (occurrence: None)
  Receive Date: 20130228
  Receipt Date: 20130228
  Transmission Date: 20140127
  Serious: No
  Sender: FDA-Public Use
  Company Number: None

PATIENT
  Age: 75 Year
  Sex: Female
  Weight: 78.93 kg

DRUGS (2)
  1. XARELTO [Suspect]
     Indication: THROMBOSIS PROPHYLAXIS
     Dates: start: 20130121
  2. XARELTO [Suspect]
     Indication: ATRIAL FIBRILLATION
     Dates: start: 20130121

REACTIONS (3)
  - Contusion [None]
  - Procedural haemorrhage [None]
  - Impaired healing [None]
